FAERS Safety Report 14885817 (Version 2)
Quarter: 2018Q2

REPORT INFORMATION
  Report Type: Spontaneous
  Country: US (occurrence: US)
  Receive Date: 20180512
  Receipt Date: 20180626
  Transmission Date: 20180711
  Serious: No
  Sender: FDA-Public Use
  Company Number: US-ASTRAZENECA-2018SE51052

PATIENT
  Age: 742 Month
  Sex: Female
  Weight: 45.4 kg

DRUGS (1)
  1. SYMBICORT [Suspect]
     Active Substance: BUDESONIDE\FORMOTEROL FUMARATE DIHYDRATE
     Indication: CHRONIC OBSTRUCTIVE PULMONARY DISEASE
     Dosage: 160/4.5 MCG, ONE OR TWO INHALATIONS, TWO TIMES A DAY
     Route: 055
     Dates: start: 20180309

REACTIONS (10)
  - Wheezing [Recovering/Resolving]
  - Weight decreased [Unknown]
  - Drug dose omission [Not Recovered/Not Resolved]
  - Therapy cessation [Unknown]
  - Device malfunction [Unknown]
  - Lower respiratory tract infection [Recovering/Resolving]
  - Malaise [Unknown]
  - Wrong technique in product usage process [Unknown]
  - Decreased appetite [Unknown]
  - Intentional product misuse [Not Recovered/Not Resolved]

NARRATIVE: CASE EVENT DATE: 201803
